FAERS Safety Report 26054829 (Version 1)
Quarter: 2025Q4

REPORT INFORMATION
  Report Type: Spontaneous
  Country: CA (occurrence: CA)
  Receive Date: 20251117
  Receipt Date: 20251117
  Transmission Date: 20260117
  Serious: Yes (Life-Threatening, Hospitalization)
  Sender: MYLAN
  Company Number: CA-MYLANLABS-2025M1097615

PATIENT
  Age: 9 Year
  Sex: Male
  Weight: 24 kg

DRUGS (4)
  1. EPINEPHRINE [Suspect]
     Active Substance: EPINEPHRINE
     Indication: Abscess drainage
     Dosage: 9 MILLIGRAM
  2. EPINEPHRINE [Suspect]
     Active Substance: EPINEPHRINE
     Dosage: 9 MILLIGRAM
     Route: 058
  3. EPINEPHRINE [Suspect]
     Active Substance: EPINEPHRINE
     Dosage: 9 MILLIGRAM
     Route: 058
  4. EPINEPHRINE [Suspect]
     Active Substance: EPINEPHRINE
     Dosage: 9 MILLIGRAM

REACTIONS (6)
  - Poisoning [Recovered/Resolved]
  - Global longitudinal strain [Recovered/Resolved]
  - Hypertension [Recovered/Resolved]
  - Presyncope [Recovered/Resolved]
  - Troponin increased [Recovered/Resolved]
  - Tachycardia [Recovered/Resolved]
